FAERS Safety Report 23310014 (Version 1)
Quarter: 2023Q4

REPORT INFORMATION
  Report Type: Spontaneous
  Country: US (occurrence: None)
  Receive Date: 20231218
  Receipt Date: 20231218
  Transmission Date: 20240110
  Serious: Yes (Other)
  Sender: FDA-Public Use
  Company Number: None

PATIENT
  Age: 70 Year
  Sex: Male

DRUGS (8)
  1. HARVONI [Suspect]
     Active Substance: LEDIPASVIR\SOFOSBUVIR
     Indication: Hepatitis C
     Dosage: FREQUENCY : DAILY;?
     Route: 048
     Dates: start: 20231127
  2. ATORVASTATIN [Concomitant]
     Active Substance: ATORVASTATIN
  3. DILANTIN [Concomitant]
     Active Substance: PHENYTOIN
  4. NITROFURANTOIN MACROCRYSTALS [Concomitant]
     Active Substance: NITROFURANTOIN
  5. PANTOPRAZOLE [Concomitant]
     Active Substance: PANTOPRAZOLE
  6. PHENOBARBITAL [Concomitant]
     Active Substance: PHENOBARBITAL
  7. TAMSULOSIN [Concomitant]
     Active Substance: TAMSULOSIN
  8. stool softer [Concomitant]

REACTIONS (3)
  - Constipation [None]
  - Seizure [None]
  - Drug interaction [None]

NARRATIVE: CASE EVENT DATE: 20231204
